FAERS Safety Report 9100537 (Version 2)
Quarter: 2013Q2

REPORT INFORMATION
  Report Type: Report from Study
  Country: US (occurrence: US)
  Receive Date: 20130214
  Receipt Date: 20130508
  Transmission Date: 20140414
  Serious: Yes (Hospitalization)
  Sender: FDA-Public Use
  Company Number: PHEH2013US003561

PATIENT
  Age: 7 Year
  Sex: Male

DRUGS (1)
  1. TOBI [Suspect]
     Indication: ASCITES
     Dosage: 1 DF, BID

REACTIONS (2)
  - Respiratory tract infection [Recovered/Resolved]
  - Upper respiratory tract infection [Unknown]
